FAERS Safety Report 8367836-6 (Version None)
Quarter: 2012Q2

REPORT INFORMATION
  Report Type: 
  Country: None (occurrence: None)
  Receive Date: 20120517
  Receipt Date: 20120510
  Transmission Date: 20120825
  Serious: Yes (Other)
  Sender: FDA-Public Use
  Company Number: VE-ROXANE LABORATORIES, INC.-2012-RO-01210RO

PATIENT
  Age: 29 Year
  Sex: Male

DRUGS (4)
  1. PRIMAQUINE [Suspect]
     Indication: PLASMODIUM FALCIPARUM INFECTION
  2. MEFLOQUINE HYDROCHLORIDE [Suspect]
  3. ARTESUNATE [Suspect]
     Indication: PLASMODIUM FALCIPARUM INFECTION
  4. MEFLOQUINE HYDROCHLORIDE [Suspect]
     Indication: PLASMODIUM FALCIPARUM INFECTION

REACTIONS (3)
  - DEHYDRATION [None]
  - DIARRHOEA [None]
  - VOMITING [None]
